FAERS Safety Report 22051583 (Version 1)
Quarter: 2023Q1

REPORT INFORMATION
  Report Type: Spontaneous
  Country: SE (occurrence: SE)
  Receive Date: 20230301
  Receipt Date: 20230301
  Transmission Date: 20230418
  Serious: Yes (Other)
  Sender: FDA-Public Use
  Company Number: None

PATIENT
  Age: 93 Year
  Sex: Female

DRUGS (12)
  1. SPIRONOLACTONE [Suspect]
     Active Substance: SPIRONOLACTONE
     Indication: Product used for unknown indication
     Dosage: STRENGTH: 25 MG, ADVERSE EFFECT OCCURRED WHEN DOSE WAS INCREASED TO 25 MG 1X1
     Dates: start: 20221227
  2. ENALAPRIL [Concomitant]
     Active Substance: ENALAPRIL
     Dosage: 1KL8+1KL20, DOSE: 2
     Dates: start: 20201214
  3. FOLIC ACID [Concomitant]
     Active Substance: FOLIC ACID
     Dosage: 1KL8, DOSE: 1
     Dates: start: 20201215
  4. ECONAZOLE NITRATE [Concomitant]
     Active Substance: ECONAZOLE NITRATE
     Dosage: 1KL8+1KL20: DOSE: 2
     Dates: start: 20201214
  5. SENSAVAL [Concomitant]
     Dosage: 1KL8: DOSE: 1
     Dates: start: 20201215
  6. FENURIL [Concomitant]
     Dosage: 1KL8
     Dates: start: 20201215
  7. BISOPROLOL [Concomitant]
     Active Substance: BISOPROLOL
     Dosage: 1+0+0+1, DOSE: 2
     Dates: start: 20201214
  8. IMOVANE [Concomitant]
     Active Substance: ZOPICLONE
     Dosage: 1KL22: DOSE: 1
     Dates: start: 20201214
  9. MIRTAZAPINE [Concomitant]
     Active Substance: MIRTAZAPINE
     Dosage: 1KL20: DOSE: 1
     Dates: start: 20201214
  10. CYANOCOBALAMIN [Concomitant]
     Active Substance: CYANOCOBALAMIN
     Dosage: 1KL8, DOSE: 1
     Dates: start: 20201215
  11. DUPHALAC [Concomitant]
     Active Substance: LACTULOSE
     Dosage: 15VBTV
     Dates: start: 20201214
  12. FELODIPINE [Concomitant]
     Active Substance: FELODIPINE
     Dosage: 1KL8: DOSE: 1
     Dates: start: 20201215

REACTIONS (1)
  - Hallucination, visual [Recovered/Resolved]

NARRATIVE: CASE EVENT DATE: 20230104
